FAERS Safety Report 9000414 (Version 1)
Quarter: 2013Q1

REPORT INFORMATION
  Report Type: Spontaneous
  Country: US (occurrence: None)
  Receive Date: 20130102
  Receipt Date: 20130102
  Transmission Date: 20140127
  Serious: Yes (Death)
  Sender: FDA-Public Use
  Company Number: None

PATIENT
  Age: 77 Year
  Sex: Female
  Weight: 62.7 kg

DRUGS (2)
  1. PEGASYS [Suspect]
     Indication: CHRONIC HEPATITIS C
     Route: 058
     Dates: start: 20120912, end: 20130101
  2. RIBASPHERE [Suspect]
     Route: 048
     Dates: start: 20120912, end: 20130101

REACTIONS (2)
  - Cardiac arrest [None]
  - Respiratory failure [None]
